FAERS Safety Report 19665813 (Version 1)
Quarter: 2021Q3

REPORT INFORMATION
  Report Type: Spontaneous
  Country: US (occurrence: US)
  Receive Date: 20210805
  Receipt Date: 20210805
  Transmission Date: 20211014
  Serious: Yes (Other)
  Sender: FDA-Public Use
  Company Number: None

PATIENT
  Age: 54 Year
  Sex: Male
  Weight: 144 kg

DRUGS (22)
  1. FENOFIBRATE. [Concomitant]
     Active Substance: FENOFIBRATE
  2. FLONASE [Concomitant]
     Active Substance: FLUTICASONE PROPIONATE
  3. CETIRIZINE [Concomitant]
     Active Substance: CETIRIZINE HYDROCHLORIDE
  4. CLINDAMYCIN. [Concomitant]
     Active Substance: CLINDAMYCIN
  5. ONDANSETRON [Concomitant]
     Active Substance: ONDANSETRON
  6. OFLOXACIN. [Concomitant]
     Active Substance: OFLOXACIN
  7. CYCLOPHOSPHAMIDE. [Suspect]
     Active Substance: CYCLOPHOSPHAMIDE
     Indication: PLASMA CELL MYELOMA
     Dosage: ?          OTHER FREQUENCY:EVERY OTHER WEEK;?
     Route: 048
     Dates: start: 20210415
  8. ACYCLOVIR. [Concomitant]
     Active Substance: ACYCLOVIR
  9. DEXAMETHASONE. [Concomitant]
     Active Substance: DEXAMETHASONE
  10. CEFDINIR. [Concomitant]
     Active Substance: CEFDINIR
  11. MULTIVITAMIN [Concomitant]
     Active Substance: VITAMINS
  12. CLOPIDOGREL [Concomitant]
     Active Substance: CLOPIDOGREL BISULFATE
  13. DIAZEPAM. [Concomitant]
     Active Substance: DIAZEPAM
  14. QUETIAPINE. [Concomitant]
     Active Substance: QUETIAPINE
  15. WARFARIN [Concomitant]
     Active Substance: WARFARIN
  16. FENTANYL. [Concomitant]
     Active Substance: FENTANYL
  17. TOBRADEX [Concomitant]
     Active Substance: DEXAMETHASONE\TOBRAMYCIN
  18. ATORVASTATIN [Concomitant]
     Active Substance: ATORVASTATIN
  19. OMEPRAZOLE. [Concomitant]
     Active Substance: OMEPRAZOLE
  20. PERCOCET [Concomitant]
     Active Substance: ACETAMINOPHEN\OXYCODONE HYDROCHLORIDE
  21. AMITIZA [Concomitant]
     Active Substance: LUBIPROSTONE
  22. BUPROPION. [Concomitant]
     Active Substance: BUPROPION

REACTIONS (1)
  - Nausea [None]

NARRATIVE: CASE EVENT DATE: 20210805
